FAERS Safety Report 5006659-2 (Version None)
Quarter: 2006Q2

REPORT INFORMATION
  Report Type: 
  Country: None (occurrence: None)
  Receive Date: 20060519
  Receipt Date: 20060509
  Transmission Date: 20061013
  Serious: Yes (Hospitalization)
  Sender: FDA-Public Use
  Company Number: PHBS2006AT06953

PATIENT
  Age: 74 Year
  Sex: Female

DRUGS (7)
  1. ZOMETA [Suspect]
     Indication: BREAST CANCER
     Dosage: UNK, UNK
     Route: 065
  2. FLUCTINE [Concomitant]
     Dosage: UNK, QD
     Route: 065
  3. FEMARA [Concomitant]
     Dosage: UNK, QD
     Route: 065
  4. AUGMENTIN '125' [Concomitant]
     Dosage: 1 G, QD
     Route: 065
  5. SYSCOR [Concomitant]
     Dosage: 10 MG, BID
     Route: 065
  6. ENAC HEXAL [Concomitant]
     Dosage: 20 MG, QD
     Route: 065
  7. DICLOVIT [Concomitant]
     Dosage: ON DEMAND

REACTIONS (10)
  - ACTINOMYCOSIS [None]
  - BONE DISORDER [None]
  - BONE TRIMMING [None]
  - GOITRE [None]
  - IMPAIRED HEALING [None]
  - OSTEOMYELITIS [None]
  - OSTEONECROSIS [None]
  - PLASTIC SURGERY [None]
  - TOOTH EXTRACTION [None]
  - WOUND DEBRIDEMENT [None]
